FAERS Safety Report 9388310 (Version 2)
Quarter: 2013Q3

REPORT INFORMATION
  Report Type: Spontaneous
  Country: US (occurrence: US)
  Receive Date: 20130708
  Receipt Date: 20130808
  Transmission Date: 20140515
  Serious: Yes (Other)
  Sender: FDA-Public Use
  Company Number: US-TEVA-416593USA

PATIENT
  Age: 49 Year
  Sex: Female
  Weight: 57.66 kg

DRUGS (2)
  1. PARAGARD 380A [Suspect]
     Indication: CONTRACEPTION
     Route: 015
     Dates: start: 20130205
  2. LEVOTHYROXINE SODIUM [Concomitant]
     Indication: BREAST CANCER

REACTIONS (4)
  - Embedded device [Not Recovered/Not Resolved]
  - Urinary tract infection [Unknown]
  - Pelvic pain [Recovered/Resolved]
  - Back pain [Unknown]
